FAERS Safety Report 9354869 (Version 1)
Quarter: 2013Q2

REPORT INFORMATION
  Report Type: Spontaneous
  Country: US (occurrence: None)
  Receive Date: 20130618
  Receipt Date: 20130618
  Transmission Date: 20140414
  Serious: No
  Sender: FDA-Public Use
  Company Number: None

PATIENT
  Age: 46 Year
  Sex: Female

DRUGS (1)
  1. LETAIRIS [Suspect]
     Indication: SCLERODERMA
     Route: 048
     Dates: start: 201305, end: 201306

REACTIONS (2)
  - Dyspnoea [None]
  - Abdominal distension [None]
